FAERS Safety Report 15629028 (Version 1)
Quarter: 2018Q4

REPORT INFORMATION
  Report Type: Spontaneous
  Country: PL (occurrence: PL)
  Receive Date: 20181116
  Receipt Date: 20181116
  Transmission Date: 20190205
  Serious: Yes (Death, Life-Threatening, Other)
  Sender: FDA-Public Use
  Company Number: PL-SEATTLE GENETICS-2018SGN02566

PATIENT
  Sex: Male

DRUGS (5)
  1. VINCRISTINE [Concomitant]
     Active Substance: VINCRISTINE
  2. PREDNISONE. [Concomitant]
     Active Substance: PREDNISONE
  3. DOXORUBICIN [Concomitant]
     Active Substance: DOXORUBICIN
  4. ADCETRIS [Suspect]
     Active Substance: BRENTUXIMAB VEDOTIN
     Indication: ANAPLASTIC LARGE CELL LYMPHOMA T- AND NULL-CELL TYPES
     Route: 042
  5. CYCLOPHOSPHAMIDE. [Concomitant]
     Active Substance: CYCLOPHOSPHAMIDE

REACTIONS (4)
  - Anaplastic large cell lymphoma T- and null-cell types [Fatal]
  - Pancytopenia [Unknown]
  - Central nervous system haemorrhage [Fatal]
  - Pulmonary toxicity [Not Recovered/Not Resolved]
